FAERS Safety Report 16765894 (Version 2)
Quarter: 2019Q3

REPORT INFORMATION
  Report Type: Spontaneous
  Country: JP (occurrence: JP)
  Receive Date: 20190903
  Receipt Date: 20190925
  Transmission Date: 20191005
  Serious: Yes (Hospitalization)
  Sender: FDA-Public Use
  Company Number: JP-ROCHE-2395896

PATIENT
  Age: 6 Year
  Sex: Female
  Weight: 18 kg

DRUGS (1)
  1. XOLAIR [Suspect]
     Active Substance: OMALIZUMAB
     Indication: ASTHMA
     Dosage: 75 MG, (ONCE IN FOUR WEEKS)
     Route: 058

REACTIONS (4)
  - Wheezing [Unknown]
  - Cough [Recovered/Resolved]
  - Asthma [Unknown]
  - Nasopharyngitis [Unknown]
